FAERS Safety Report 16287446 (Version 1)
Quarter: 2019Q2

REPORT INFORMATION
  Report Type: Spontaneous
  Country: TH (occurrence: TH)
  Receive Date: 20190508
  Receipt Date: 20190508
  Transmission Date: 20190711
  Serious: Yes (Hospitalization, Other)
  Sender: FDA-Public Use
  Company Number: TH-MYLANLABS-2019M1043271

PATIENT
  Age: 52 Year
  Sex: Male

DRUGS (1)
  1. GEMCITABINE [Suspect]
     Active Substance: GEMCITABINE\GEMCITABINE HYDROCHLORIDE
     Indication: CHOLANGIOCARCINOMA
     Dosage: ON DAYS 1, 8, AND 15 EVERY FOUR WEEKS
     Route: 065

REACTIONS (5)
  - Thrombotic microangiopathy [Recovered/Resolved]
  - Tubulointerstitial nephritis [Recovered/Resolved]
  - Lupus nephritis [Recovered/Resolved]
  - Acute kidney injury [Recovered/Resolved]
  - Generalised oedema [Unknown]
